FAERS Safety Report 12144538 (Version 1)
Quarter: 2016Q1

REPORT INFORMATION
  Report Type: Report from Study
  Country: US (occurrence: US)
  Receive Date: 20160304
  Receipt Date: 20160304
  Transmission Date: 20160526
  Serious: Yes (Disabling, Other)
  Sender: FDA-Public Use
  Company Number: US-EMD SERONO-E2B_80032309

PATIENT
  Age: 54 Year
  Sex: Male

DRUGS (1)
  1. REBIF [Suspect]
     Active Substance: INTERFERON BETA-1A
     Indication: PRODUCT USED FOR UNKNOWN INDICATION
     Route: 058
     Dates: start: 20160119

REACTIONS (5)
  - General physical health deterioration [Not Recovered/Not Resolved]
  - Fall [Recovered/Resolved]
  - Contusion [Not Recovered/Not Resolved]
  - Thought blocking [Recovered/Resolved]
  - Activities of daily living impaired [Recovered/Resolved]

NARRATIVE: CASE EVENT DATE: 201602
